FAERS Safety Report 4308889-1 (Version None)
Quarter: 2004Q1

REPORT INFORMATION
  Report Type: 
  Country: None (occurrence: None)
  Receive Date: 20040227
  Receipt Date: 20040216
  Transmission Date: 20041129
  Serious: Yes (Hospitalization, Other)
  Sender: FDA-Public Use
  Company Number: 2004007321

PATIENT
  Age: 74 Year
  Sex: Female

DRUGS (10)
  1. LIPITOR [Suspect]
     Indication: HYPERLIPIDAEMIA
     Dosage: 5 MG (DAILY), ORAL
     Route: 048
     Dates: start: 20020823, end: 20040203
  2. BROTIZOLAM (BROTIZOLAM) [Concomitant]
  3. SENNA LEAF (SENNA LEAF) [Concomitant]
  4. MAGNESIUM OXIDE [Concomitant]
  5. RHYBARB (RHUBARB) [Concomitant]
  6. CILNIDIPINE (CILNIDIPINE) [Concomitant]
  7. RABEPRAZOLE SODIUM (RABEPRAZOLE SODIUM) [Concomitant]
  8. URSODEOXYCHOLIC ACID (URSODEOXYCHOLIC ACID) [Concomitant]
  9. SINEMET [Concomitant]
  10. AMANTADINE HCL [Concomitant]

REACTIONS (3)
  - CEREBRAL ATHEROSCLEROSIS [None]
  - PARKINSON'S DISEASE [None]
  - RHABDOMYOLYSIS [None]
